FAERS Safety Report 22325711 (Version 2)
Quarter: 2023Q2

REPORT INFORMATION
  Report Type: Spontaneous
  Country: US (occurrence: None)
  Receive Date: 20230516
  Receipt Date: 20230627
  Transmission Date: 20230722
  Serious: Yes (Congenital Anomaly, Other)
  Sender: FDA-Public Use
  Company Number: 2023A107144

PATIENT
  Age: 814 Month

DRUGS (2)
  1. FASENRA [Suspect]
     Active Substance: BENRALIZUMAB
     Route: 058
     Dates: start: 202201, end: 202211
  2. FASENRA [Suspect]
     Active Substance: BENRALIZUMAB
     Route: 058
     Dates: start: 202203

REACTIONS (9)
  - Pruritus [Not Recovered/Not Resolved]
  - Rash [Not Recovered/Not Resolved]
  - Swelling face [Unknown]
  - Periorbital swelling [Unknown]
  - Eczema [Unknown]
  - Eosinophil count increased [Unknown]
  - Respiratory tract congestion [Unknown]
  - Asthma [Unknown]
  - Erythema [Unknown]

NARRATIVE: CASE EVENT DATE: 20220501
